FAERS Safety Report 8859768 (Version 1)
Quarter: 2012Q4

REPORT INFORMATION
  Report Type: Report from Study
  Country: US (occurrence: US)
  Receive Date: 20121025
  Receipt Date: 20121025
  Transmission Date: 20130627
  Serious: No
  Sender: FDA-Public Use
  Company Number: US-ABBOTT-12P-163-0981886-00

PATIENT
  Sex: Female

DRUGS (3)
  1. LUPRON DEPOT [Suspect]
     Indication: ENDOMETRIOSIS
     Dates: start: 201207
  2. UNKNOWN ADBACK THERAPY MEDICATION [Concomitant]
     Indication: HOT FLUSH
  3. UNKNOWN ADBACK THERAPY MEDICATION [Concomitant]
     Indication: NIGHT SWEATS

REACTIONS (4)
  - Night sweats [Recovered/Resolved]
  - Hunger [Not Recovered/Not Resolved]
  - Hot flush [Recovered/Resolved]
  - Weight increased [Not Recovered/Not Resolved]
